FAERS Safety Report 5371323-7 (Version None)
Quarter: 2007Q2

REPORT INFORMATION
  Report Type: 
  Country: None (occurrence: None)
  Receive Date: 20070615
  Receipt Date: 20070208
  Transmission Date: 20071010
  Serious: Yes (Other)
  Sender: FDA-Public Use
  Company Number: 200618071US

PATIENT
  Age: 37 Year
  Sex: Female

DRUGS (2)
  1. LANTUS [Suspect]
     Indication: DIABETES MELLITUS INSULIN-DEPENDENT
     Dosage: A FEW YEARS
  2. APIDRA [Concomitant]

REACTIONS (7)
  - AKINESIA [None]
  - APHASIA [None]
  - ASTHENIA [None]
  - BLOOD GLUCOSE DECREASED [None]
  - DYSKINESIA [None]
  - HYPERGLYCAEMIA [None]
  - HYPOGLYCAEMIA [None]
